FAERS Safety Report 13373540 (Version 1)
Quarter: 2017Q1

REPORT INFORMATION
  Report Type: Spontaneous
  Country: FR (occurrence: FR)
  Receive Date: 20170327
  Receipt Date: 20170327
  Transmission Date: 20170429
  Serious: Yes (Hospitalization)
  Sender: FDA-Public Use
  Company Number: FR-PFIZER INC-2017117201

PATIENT
  Age: 83 Year
  Sex: Female

DRUGS (13)
  1. BISOPROLOL [Concomitant]
     Active Substance: BISOPROLOL
     Dosage: 1.25 MG, DAILY
  2. FUROSEMIDE. [Concomitant]
     Active Substance: FUROSEMIDE
     Dosage: 20 MG UP TO 40 MG, DAILY
     Dates: start: 20170216, end: 20170218
  3. CALCIPARINE [Concomitant]
     Active Substance: HEPARIN CALCIUM
     Dosage: 5000 IU, 2X/DAY
     Dates: start: 20170218
  4. IMIPENEM [Suspect]
     Active Substance: IMIPENEM
     Indication: ERYSIPELAS
     Dosage: 1 G, 3X/DAY
     Route: 042
     Dates: start: 20170217, end: 20170222
  5. MORPHINE [Concomitant]
     Active Substance: MORPHINE
     Dosage: 5 MG
     Dates: start: 20170216, end: 201702
  6. VITAMIN K [Concomitant]
     Active Substance: PHYTONADIONE
     Dosage: 10 MG, DAILY
     Route: 042
     Dates: start: 20170216, end: 20170217
  7. CILASTATIN [Concomitant]
     Active Substance: CILASTATIN
     Dosage: 1 G, 3X/DAY
     Dates: start: 20170216, end: 20170222
  8. OXYCODONE [Concomitant]
     Active Substance: OXYCODONE
     Dosage: 5 MG, AS NEEDED
     Dates: start: 20170217, end: 20170217
  9. PYOSTACINE [Concomitant]
     Active Substance: PRISTINAMYCIN
     Dosage: 1 G, SINGLE
     Dates: start: 20170216, end: 20170216
  10. ZYVOXID [Suspect]
     Active Substance: LINEZOLID
     Indication: ERYSIPELAS
     Dosage: 600 MG, 2X/DAY
     Route: 048
     Dates: start: 20170217, end: 20170224
  11. AUGMENTIN [Concomitant]
     Active Substance: AMOXICILLIN\CLAVULANATE POTASSIUM
     Dosage: UNK
     Dates: start: 2017
  12. EUPANTOL [Concomitant]
     Active Substance: PANTOPRAZOLE SODIUM
     Dosage: 20 MG, DAILY
     Dates: start: 20170216
  13. MIANSERIN [Concomitant]
     Active Substance: MIANSERIN
     Dosage: 10 MG, DAILY

REACTIONS (1)
  - Encephalopathy [Recovered/Resolved]

NARRATIVE: CASE EVENT DATE: 20170222
